FAERS Safety Report 21388509 (Version 1)
Quarter: 2022Q3

REPORT INFORMATION
  Report Type: Spontaneous
  Country: GB (occurrence: GB)
  Receive Date: 20220928
  Receipt Date: 20220928
  Transmission Date: 20221027
  Serious: Yes (Other)
  Sender: FDA-Public Use
  Company Number: GB-MHRA-MED-202209221716238170-KHPWT

PATIENT
  Age: 34 Year
  Sex: Male

DRUGS (1)
  1. CLOBAZAM [Suspect]
     Active Substance: CLOBAZAM
     Indication: Product used for unknown indication
     Dosage: PT WAS ADMINISTERED 5 MG/5 ML BID INSTEAD OF PRESCRIBED 10 MG/5 ML
     Route: 065

REACTIONS (3)
  - Seizure [Unknown]
  - Emotional disorder [Unknown]
  - Medication error [Unknown]
